FAERS Safety Report 7308770-X (Version None)
Quarter: 2011Q1

REPORT INFORMATION
  Report Type: 
  Country: None (occurrence: None)
  Receive Date: 20110223
  Receipt Date: 20110214
  Transmission Date: 20110831
  Serious: Yes (Hospitalization, Other)
  Sender: FDA-Public Use
  Company Number: PHHY2011US01945

PATIENT
  Sex: Male
  Weight: 87.7 kg

DRUGS (2)
  1. EXJADE [Suspect]
     Indication: ANAEMIA
     Dosage: 1500 MG, DAILY
     Route: 048
     Dates: start: 20101209
  2. EXJADE [Suspect]
     Indication: IRON OVERLOAD

REACTIONS (3)
  - HEARING IMPAIRED [None]
  - PNEUMONIA [None]
  - HAEMOGLOBIN DECREASED [None]
